FAERS Safety Report 8045525-5 (Version None)
Quarter: 2012Q1

REPORT INFORMATION
  Report Type: 
  Country: None (occurrence: None)
  Receive Date: 20120113
  Receipt Date: 20120106
  Transmission Date: 20120608
  Serious: Yes (Other)
  Sender: FDA-Public Use
  Company Number: IN-JNJFOC-20120102027

PATIENT
  Age: 70 Year
  Sex: Male

DRUGS (4)
  1. XARELTO [Suspect]
     Indication: THROMBOSIS PROPHYLAXIS
     Route: 065
  2. XARELTO [Suspect]
     Indication: HIP SURGERY
     Route: 065
  3. XARELTO [Suspect]
     Route: 065
  4. XARELTO [Suspect]
     Route: 065

REACTIONS (2)
  - POST PROCEDURAL HAEMORRHAGE [None]
  - HAEMOGLOBIN DECREASED [None]
